FAERS Safety Report 18631860 (Version 2)
Quarter: 2021Q2

REPORT INFORMATION
  Report Type: Spontaneous
  Country: US (occurrence: US)
  Receive Date: 20201217
  Receipt Date: 20210414
  Transmission Date: 20210717
  Serious: Yes (Hospitalization)
  Sender: FDA-Public Use
  Company Number: US-CSPC OUYI PHARMACEUTICAL CO., LTD.-2103164

PATIENT
  Sex: Male

DRUGS (1)
  1. METFORMIN HYDROCHLORIDE EXTEND?RELEASE [Suspect]
     Active Substance: METFORMIN HYDROCHLORIDE
     Route: 048
     Dates: start: 20021101, end: 20201015

REACTIONS (5)
  - Dementia [Unknown]
  - Prostate examination abnormal [Unknown]
  - Dyspepsia [Unknown]
  - Chromaturia [Unknown]
  - Stevens-Johnson syndrome [Not Recovered/Not Resolved]
